FAERS Safety Report 8414931-9 (Version None)
Quarter: 2012Q2

REPORT INFORMATION
  Report Type: 
  Country: None (occurrence: None)
  Receive Date: 20120601
  Receipt Date: 20120601
  Transmission Date: 20120825
  Serious: Yes (Life-Threatening, Other)
  Sender: FDA-Public Use
  Company Number: None

PATIENT
  Age: 51 Year
  Sex: Female
  Weight: 48.9885 kg

DRUGS (2)
  1. METOPROLOL SUCCINATE [Suspect]
     Indication: CARDIAC OPERATION
     Dosage: 1 TABLET DAILY PO
     Route: 048
     Dates: start: 20120403, end: 20120504
  2. METOPROLOL SUCCINATE [Suspect]
     Indication: POSTOPERATIVE CARE
     Dosage: 1 TABLET DAILY PO
     Route: 048
     Dates: start: 20120403, end: 20120504

REACTIONS (9)
  - PRODUCT SUBSTITUTION ISSUE [None]
  - REACTION TO DRUG EXCIPIENTS [None]
  - LETHARGY [None]
  - PALPITATIONS [None]
  - CHEST PAIN [None]
  - PRODUCT QUALITY ISSUE [None]
  - DIZZINESS [None]
  - HEART RATE ABNORMAL [None]
  - ARRHYTHMIA [None]
